FAERS Safety Report 16135064 (Version 1)
Quarter: 2019Q1

REPORT INFORMATION
  Report Type: Spontaneous
  Country: US (occurrence: US)
  Receive Date: 20190329
  Receipt Date: 20190329
  Transmission Date: 20190418
  Serious: No
  Sender: FDA-Public Use
  Company Number: US-TEVA-2019-US-1021984

PATIENT
  Sex: Male

DRUGS (1)
  1. AMLODIPINE BESYLATE AND BENAZEPRIL HYDROCHLORIDE CAPSULES [Suspect]
     Active Substance: AMLODIPINE BESYLATE\BENAZEPRIL HYDROCHLORIDE
     Indication: HYPERTENSION
     Dosage: FORM STRENGTH 10MG/20MG
     Route: 065

REACTIONS (2)
  - Product substitution issue [Unknown]
  - Drug effect decreased [Unknown]
